FAERS Safety Report 5387709-0 (Version None)
Quarter: 2007Q3

REPORT INFORMATION
  Report Type: 
  Country: None (occurrence: None)
  Receive Date: 20070716
  Receipt Date: 20070709
  Transmission Date: 20080115
  Serious: Yes (Death)
  Sender: FDA-Public Use
  Company Number: US-JNJFOC-20070701864

PATIENT
  Age: 35 Year
  Sex: Female

DRUGS (4)
  1. IMODIUM A-D [Suspect]
     Indication: SUICIDE ATTEMPT
  2. IMODIUM A-D [Suspect]
     Indication: DIARRHOEA
     Dosage: DOSE UNKNOWN, ON AND OFF FOR YEARS
  3. GABAPENTIN [Suspect]
     Indication: SUICIDE ATTEMPT
  4. UNSPECIFIED MEDICATIONS [Suspect]
     Indication: SUICIDE ATTEMPT

REACTIONS (4)
  - COMPLETED SUICIDE [None]
  - HEPATIC CONGESTION [None]
  - MULTIPLE DRUG OVERDOSE INTENTIONAL [None]
  - PULMONARY CONGESTION [None]
